FAERS Safety Report 19666518 (Version 3)
Quarter: 2021Q3

REPORT INFORMATION
  Report Type: Spontaneous
  Country: MX (occurrence: MX)
  Receive Date: 20210806
  Receipt Date: 20210819
  Transmission Date: 20211014
  Serious: Yes (Life-Threatening, Hospitalization, Other)
  Sender: FDA-Public Use
  Company Number: NVSC2021MX175168

PATIENT
  Age: 71 Year
  Sex: Female
  Weight: 72 kg

DRUGS (2)
  1. TEGRETOL [Suspect]
     Active Substance: CARBAMAZEPINE
     Indication: CEREBRAL DISORDER
     Dosage: 2 DF, QD (STARTED APPROXIMATELY 25 YEARS AGO))
     Route: 048
     Dates: end: 20210217
  2. TEGRETOL [Suspect]
     Active Substance: CARBAMAZEPINE
     Dosage: 2 DF, QD
     Route: 048
     Dates: start: 20210712

REACTIONS (4)
  - Product use in unapproved indication [Unknown]
  - COVID-19 [Recovered/Resolved]
  - Seizure [Recovered/Resolved]
  - Lung disorder [Unknown]

NARRATIVE: CASE EVENT DATE: 20210217
